FAERS Safety Report 24273251 (Version 1)
Quarter: 2024Q3

REPORT INFORMATION
  Report Type: Spontaneous
  Country: BR (occurrence: BR)
  Receive Date: 20240902
  Receipt Date: 20240902
  Transmission Date: 20241017
  Serious: Yes (Hospitalization)
  Sender: AMGEN
  Company Number: BR-AMGEN-BRASP2024172199

PATIENT
  Age: 55 Year
  Sex: Female

DRUGS (2)
  1. PROLIA [Suspect]
     Active Substance: DENOSUMAB
     Indication: Osteoporosis
     Dosage: 60 MILLIGRAM, Q6MO (1 AMPOULE EVERY 6 MONTHS)
     Route: 065
  2. TIMOLOL [Concomitant]
     Active Substance: TIMOLOL
     Indication: Glaucoma
     Dosage: UNK

REACTIONS (2)
  - Lumbar vertebral fracture [Recovering/Resolving]
  - Intervertebral disc protrusion [Recovering/Resolving]
